FAERS Safety Report 8427489-5 (Version None)
Quarter: 2012Q2

REPORT INFORMATION
  Report Type: 
  Country: None (occurrence: None)
  Receive Date: 20120611
  Receipt Date: 20120606
  Transmission Date: 20120825
  Serious: Yes (Hospitalization)
  Sender: FDA-Public Use
  Company Number: DK-ELI_LILLY_AND_COMPANY-DK201206001857

PATIENT
  Sex: Male
  Weight: 100 kg

DRUGS (3)
  1. PRASUGREL HYDROCHLORIDE [Suspect]
     Dosage: 60 MG, LOADING DOSE
     Dates: start: 20110314
  2. ASPIRIN [Concomitant]
  3. PRASUGREL HYDROCHLORIDE [Suspect]
     Dosage: 10 MG, QD

REACTIONS (2)
  - ANGINA UNSTABLE [None]
  - IN-STENT ARTERIAL RESTENOSIS [None]
